FAERS Safety Report 22399894 (Version 1)
Quarter: 2023Q2

REPORT INFORMATION
  Report Type: Spontaneous
  Country: US (occurrence: US)
  Receive Date: 20230602
  Receipt Date: 20230602
  Transmission Date: 20230721
  Serious: Yes (Life-Threatening, Hospitalization, Other)
  Sender: FDA-Public Use
  Company Number: US-MLMSERVICE-20230522-4298606-1

PATIENT
  Age: 36 Year
  Sex: Female

DRUGS (1)
  1. LOPERAMIDE HYDROCHLORIDE [Suspect]
     Active Substance: LOPERAMIDE HYDROCHLORIDE
     Indication: Diarrhoea
     Dosage: 16 MG, QD
     Route: 048

REACTIONS (4)
  - Ventricular fibrillation [Unknown]
  - Torsade de pointes [Unknown]
  - Cardiac arrest [Unknown]
  - Intentional overdose [Unknown]
